FAERS Safety Report 5605967-1 (Version None)
Quarter: 2008Q1

REPORT INFORMATION
  Report Type: 
  Country: None (occurrence: None)
  Receive Date: 20080123
  Receipt Date: 20080123
  Transmission Date: 20080703
  Serious: Yes (Other)
  Sender: FDA-Public Use
  Company Number: None

PATIENT
  Age: 59 Year
  Sex: Female
  Weight: 68.0396 kg

DRUGS (4)
  1. VYTORIN [Suspect]
     Indication: BLOOD CHOLESTEROL INCREASED
     Dosage: ONE PILL  ONCE A DAY PO
     Route: 048
     Dates: start: 20070820, end: 20071226
  2. ACIPHEX [Concomitant]
  3. RANITDINE [Concomitant]
  4. SENNA [Concomitant]

REACTIONS (4)
  - CHEST PAIN [None]
  - MUSCLE SPASMS [None]
  - PAIN [None]
  - SLEEP DISORDER [None]
